FAERS Safety Report 4367132-8 (Version None)
Quarter: 2004Q2

REPORT INFORMATION
  Report Type: 
  Country: None (occurrence: None)
  Receive Date: 20040528
  Receipt Date: 20040427
  Transmission Date: 20050107
  Serious: Yes (Hospitalization)
  Sender: FDA-Public Use
  Company Number: JP-GLAXOSMITHKLINE-B0331308A

PATIENT
  Age: 26 Year
  Sex: Male

DRUGS (2)
  1. VALTREX [Suspect]
     Indication: HERPES ZOSTER
     Dosage: 1000MG THREE TIMES PER DAY
     Route: 048
     Dates: start: 20040422, end: 20040426
  2. ALLEGRA [Concomitant]
     Dosage: 2U PER DAY
     Route: 048
     Dates: start: 20040423

REACTIONS (1)
  - ERYTHEMA MULTIFORME [None]
